FAERS Safety Report 13264956 (Version 1)
Quarter: 2017Q1

REPORT INFORMATION
  Report Type: Spontaneous
  Country: US (occurrence: US)
  Receive Date: 20170223
  Receipt Date: 20170223
  Transmission Date: 20170428
  Serious: No
  Sender: FDA-Public Use
  Company Number: US-PURDUE-USA-2015-0126770

PATIENT
  Sex: Male

DRUGS (1)
  1. HYDROCODONE BITARTRATE (SIMILAR TO NDA 206627) [Suspect]
     Active Substance: HYDROCODONE BITARTRATE
     Indication: PAIN
     Dosage: 1 TABLET, Q4- 6H PRN
     Route: 048
     Dates: start: 20150927, end: 20150927

REACTIONS (4)
  - Constipation [Recovered/Resolved]
  - Intentional product use issue [Unknown]
  - Wrong technique in product usage process [Unknown]
  - Inadequate analgesia [Unknown]
